FAERS Safety Report 6061853-7 (Version None)
Quarter: 2009Q1

REPORT INFORMATION
  Report Type: 
  Country: None (occurrence: None)
  Receive Date: 20090202
  Receipt Date: 20090126
  Transmission Date: 20090719
  Serious: Yes (Hospitalization)
  Sender: FDA-Public Use
  Company Number: US-ELI_LILLY_AND_COMPANY-US200812003821

PATIENT
  Sex: Female
  Weight: 101.36 kg

DRUGS (19)
  1. BYETTA [Suspect]
     Indication: TYPE 2 DIABETES MELLITUS
     Dosage: 5 UG, 2/D
     Route: 058
     Dates: start: 20070701, end: 20070101
  2. BYETTA [Suspect]
     Dosage: 10 UG, 2/D
     Route: 058
     Dates: start: 20070101, end: 20080101
  3. BYETTA [Suspect]
     Dosage: 10 UG, 2/D
     Route: 058
     Dates: start: 20080101
  4. HUMALOG [Concomitant]
     Indication: TYPE 2 DIABETES MELLITUS
     Dosage: UNK, UNKNOWN
     Route: 058
     Dates: start: 20020101, end: 20070101
  5. HUMALOG [Concomitant]
     Dosage: 25 U, EACH MORNING
     Route: 058
     Dates: start: 20070101, end: 20080101
  6. HUMALOG [Concomitant]
     Dosage: 0.3 U, EACH MORNING
     Route: 058
     Dates: start: 20080101, end: 20080101
  7. HUMALOG [Concomitant]
     Dosage: 20 U, EACH MORNING
     Route: 058
     Dates: start: 20080101
  8. HUMALOG [Concomitant]
     Dosage: 12 U, EACH EVENING
     Route: 058
     Dates: start: 20080101
  9. LISINOPRIL [Concomitant]
     Indication: HYPERTENSION
     Dosage: 20 MG, 2/D
     Route: 048
  10. ATENOLOL [Concomitant]
     Indication: HYPERTENSION
     Dosage: 50 MG, 2/D
     Route: 048
  11. TRIAMTERENE AND HYDROCHLOROTHIAZIDE [Concomitant]
     Indication: HYPERTENSION
     Dosage: UNK, DAILY (1/D)
     Route: 048
  12. PROTONIX [Concomitant]
     Indication: HIATUS HERNIA
     Dosage: 40 MG, DAILY (1/D)
     Route: 048
     Dates: start: 20081101
  13. FLUTICASONE PROPIONATE [Concomitant]
     Indication: SEASONAL ALLERGY
     Dosage: UNK, 2/D
     Route: 045
  14. CLARITIN [Concomitant]
     Indication: SEASONAL ALLERGY
     Dosage: 10 MG, DAILY (1/D)
     Route: 048
  15. FISH OIL [Concomitant]
     Indication: ROUTINE HEALTH MAINTENANCE
     Dosage: UNK, UNKNOWN
     Route: 048
  16. FLAXSEED OIL [Concomitant]
     Indication: ROUTINE HEALTH MAINTENANCE
     Dosage: UNK, UNKNOWN
     Route: 048
  17. RANITIDINE HCL [Concomitant]
     Indication: HIATUS HERNIA
     Dosage: 150 MG, 2/D
     Route: 048
     Dates: end: 20081101
  18. GLIPIZIDE [Concomitant]
     Indication: TYPE 2 DIABETES MELLITUS
     Dosage: 5 MG, 2/D
     Route: 048
     Dates: end: 20080601
  19. PACERONE [Concomitant]
     Indication: CARDIAC DISORDER
     Dosage: UNK, UNKNOWN
     Route: 048
     Dates: start: 20080201, end: 20080401

REACTIONS (12)
  - ATRIAL FIBRILLATION [None]
  - BLOOD GLUCOSE DECREASED [None]
  - BLOOD GLUCOSE FLUCTUATION [None]
  - BLOOD GLUCOSE INCREASED [None]
  - CORONARY ARTERY DISEASE [None]
  - INCORRECT DOSE ADMINISTERED [None]
  - INJECTION SITE HAEMORRHAGE [None]
  - INTERNATIONAL NORMALISED RATIO ABNORMAL [None]
  - MALAISE [None]
  - RHINORRHOEA [None]
  - SINUS HEADACHE [None]
  - WEIGHT FLUCTUATION [None]
